FAERS Safety Report 8592739-1 (Version None)
Quarter: 2012Q3

REPORT INFORMATION
  Report Type: 
  Country: None (occurrence: None)
  Receive Date: 20120814
  Receipt Date: 20120810
  Transmission Date: 20120928
  Serious: Yes (Death, Hospitalization)
  Sender: FDA-Public Use
  Company Number: DE-ROCHE-1081957

PATIENT
  Age: 52 Year
  Sex: Male
  Weight: 105.2 kg

DRUGS (16)
  1. PACLITAXEL [Suspect]
     Indication: NON-SMALL CELL LUNG CANCER
     Dosage: LAST DOSE ADMINISTERED 432 MG ON 05/JUNE/2012
     Route: 042
     Dates: start: 20120424
  2. ONDANSETRON [Concomitant]
     Route: 042
     Dates: start: 20120424, end: 20120605
  3. DEXAMETHASONE [Concomitant]
     Route: 042
     Dates: start: 20120424, end: 20120605
  4. ERYTHROCYTE TRANSFUSIONS [Concomitant]
     Indication: ANAEMIA
     Dosage: DOSE: 9 UNITS
     Route: 042
     Dates: start: 20120625, end: 20120625
  5. CARBOPLATIN [Suspect]
     Indication: NON-SMALL CELL LUNG CANCER
     Dosage: LAST DOSE ADMINISTERED 432 MG ON 05/JUNE/2012
     Route: 042
     Dates: start: 20120424
  6. DICLOFENAC [Concomitant]
     Route: 048
  7. ACC LONG [Concomitant]
     Indication: CHRONIC OBSTRUCTIVE PULMONARY DISEASE
     Route: 048
  8. IBUPROFEN [Concomitant]
     Indication: INFLAMMATION
     Route: 048
     Dates: start: 20120601, end: 20120601
  9. MEGF0444A (ANTI-EGFL7) [Suspect]
     Indication: NON-SMALL CELL LUNG CANCER
     Dosage: LAST DOSE - 05/JUNE/2012, 605 MG
     Route: 042
     Dates: start: 20120424
  10. CLEMASTINE FUMARATE [Concomitant]
     Route: 042
     Dates: start: 20120424, end: 20120605
  11. AVASTIN [Suspect]
     Indication: NON-SMALL CELL LUNG CANCER
     Dosage: LAST DOSE ADMINISTERED 1575 MG ON 05/JUNE/2012
     Route: 042
     Dates: start: 20120424
  12. OXAZEPAM [Concomitant]
     Indication: INSOMNIA
     Route: 048
     Dates: start: 20120413
  13. FRESH FROZEN PLASMA [Concomitant]
     Indication: ANAEMIA
     Dosage: DOSE: 1 UNIT
     Route: 042
     Dates: start: 20120625, end: 20120625
  14. OMEPRAZOLE [Concomitant]
     Indication: GASTRIC ULCER
     Dates: start: 20080101
  15. RANITIDINE [Concomitant]
     Route: 042
     Dates: start: 20120424, end: 20120605
  16. ZOPICLON [Concomitant]
     Indication: INSOMNIA
     Route: 048
     Dates: start: 20120514

REACTIONS (1)
  - GASTRIC ULCER HAEMORRHAGE [None]
